FAERS Safety Report 23103258 (Version 1)
Quarter: 2023Q4

REPORT INFORMATION
  Report Type: Spontaneous
  Country: HR (occurrence: HR)
  Receive Date: 20231025
  Receipt Date: 20231025
  Transmission Date: 20240110
  Serious: Yes (Other)
  Sender: FDA-Public Use
  Company Number: None

PATIENT
  Sex: Male

DRUGS (3)
  1. XANAX [Suspect]
     Active Substance: ALPRAZOLAM
     Indication: Product used for unknown indication
     Dosage: 4 MILLIGRAM, QD (4 TABLET OF 1 MG)
     Route: 048
     Dates: start: 20230916, end: 20230916
  2. OXAZEPAM [Suspect]
     Active Substance: OXAZEPAM
     Indication: Product used for unknown indication
     Dosage: 375 MILLIGRAM, QD (25 TABLET OF 15 MG)
     Route: 048
     Dates: start: 20230916, end: 20230916
  3. QUETIAPINE [Suspect]
     Active Substance: QUETIAPINE
     Indication: Product used for unknown indication
     Dosage: 1500 MILLIGRAM, QD (60 TABLETS OF 25 MG)
     Route: 048
     Dates: start: 20230916, end: 20230916

REACTIONS (3)
  - Suicide attempt [Unknown]
  - Loss of consciousness [Unknown]
  - Intentional overdose [Unknown]

NARRATIVE: CASE EVENT DATE: 20230916
